FAERS Safety Report 11528436 (Version 1)
Quarter: 2015Q3

REPORT INFORMATION
  Report Type: Spontaneous
  Country: US (occurrence: None)
  Receive Date: 20150917
  Receipt Date: 20150917
  Transmission Date: 20151125
  Serious: Yes (Other)
  Sender: FDA-Public Use
  Company Number: US2015118849

PATIENT
  Age: 81 Year
  Sex: Female

DRUGS (1)
  1. TUMS SMOOTHIES [Suspect]
     Active Substance: CALCIUM CARBONATE
     Indication: DYSPEPSIA

REACTIONS (5)
  - Drug dependence [None]
  - Somnolence [None]
  - Feeling of relaxation [None]
  - Condition aggravated [None]
  - Dyspepsia [None]
